FAERS Safety Report 25275959 (Version 1)
Quarter: 2025Q2

REPORT INFORMATION
  Report Type: Spontaneous
  Country: US (occurrence: US)
  Receive Date: 20250507
  Receipt Date: 20250507
  Transmission Date: 20250716
  Serious: No
  Sender: NOVARTIS
  Company Number: US-002147023-NVSC2025US073047

PATIENT
  Sex: Male

DRUGS (2)
  1. MEKINIST [Suspect]
     Active Substance: TRAMETINIB DIMETHYL SULFOXIDE
     Indication: Brain neoplasm malignant
     Dosage: 1.5 MG, QD
     Route: 048
     Dates: start: 202503
  2. TAFINLAR [Suspect]
     Active Substance: DABRAFENIB MESYLATE
     Indication: Brain neoplasm malignant
     Dosage: 150 MG, Q12H
     Route: 048
     Dates: start: 202503

REACTIONS (3)
  - Pyrexia [Unknown]
  - Chills [Unknown]
  - Tremor [Unknown]
